FAERS Safety Report 9410127 (Version 1)
Quarter: 2013Q3

REPORT INFORMATION
  Report Type: Spontaneous
  Country: GB (occurrence: GB)
  Receive Date: 20130719
  Receipt Date: 20130719
  Transmission Date: 20140515
  Serious: Yes (Other)
  Sender: FDA-Public Use
  Company Number: GB-B.I. PHARMACEUTICALS,INC./RIDGEFIELD-2013-UK-01315UK

PATIENT
  Age: 70 Year
  Sex: Female
  Weight: 77.8 kg

DRUGS (5)
  1. TRAJENTA [Suspect]
     Indication: TYPE 2 DIABETES MELLITUS
     Dosage: 5 MG
     Route: 048
     Dates: start: 20130426, end: 20130429
  2. GLICLAZIDE [Concomitant]
     Indication: DIABETES MELLITUS
     Dosage: 320 MG
     Route: 048
     Dates: start: 1996
  3. RAMIPRIL [Concomitant]
     Indication: HYPERTENSION
     Dosage: 5 MG
     Route: 048
     Dates: start: 2007
  4. SIMVASTATIN [Concomitant]
     Indication: HYPERCHOLESTEROLAEMIA
     Dosage: 40 MG
     Route: 048
     Dates: start: 1995
  5. COLECALCIFEROL [Concomitant]
     Dosage: 400 U
     Route: 048
     Dates: start: 2008

REACTIONS (2)
  - Nausea [Recovered/Resolved]
  - Dizziness [Recovered/Resolved]
